FAERS Safety Report 8917491 (Version 4)
Quarter: 2013Q3

REPORT INFORMATION
  Report Type: Spontaneous
  Country: US (occurrence: US)
  Receive Date: 20121120
  Receipt Date: 20130701
  Transmission Date: 20140515
  Serious: Yes (Life-Threatening, Hospitalization, Other)
  Sender: FDA-Public Use
  Company Number: US-BAYER-2012-119111

PATIENT
  Age: 20 Year
  Sex: Female
  Weight: 66 kg

DRUGS (11)
  1. OCELLA [Suspect]
     Indication: CONTRACEPTION
     Dosage: UNK
     Dates: start: 2010, end: 20100516
  2. OCELLA [Suspect]
     Indication: ACNE
  3. GIANVI [Suspect]
     Indication: ACNE
     Dosage: UNK
     Dates: start: 2010, end: 20120516
  4. ACETAMINOPHEN [Concomitant]
  5. SERTRALINE HYDROCHLORIDE [Concomitant]
     Indication: ANXIETY
     Dosage: 100 MG, 1AND ? TABLETS
     Route: 048
  6. CLINDAMYCIN PHOSPHATE [Concomitant]
     Dosage: 1 %, BID, APPLY THIN FILM TO AFFECTED AREA
     Route: 061
  7. CLINDAMYCIN HYDROCHLORIDE [Concomitant]
     Dosage: 300 MG, 1 CAPSULE EVERY 8 HOURS FOR 10 DAYS
     Route: 048
  8. AMOXIL [Concomitant]
     Indication: PHARYNGITIS STREPTOCOCCAL
     Dosage: 875 MG, EVERY 12 HOURS FOR 10 DAYS
     Route: 048
  9. NYQUIL [Concomitant]
     Indication: HEADACHE
     Dosage: UNK
     Route: 048
     Dates: start: 201205
  10. DAYQUIL [DEXTROMET HBR,PARACET,PSEUDOEPH HCL] [Concomitant]
     Indication: HEADACHE
     Dosage: UNK
     Route: 048
     Dates: start: 201205
  11. ADVIL [Concomitant]
     Indication: HEADACHE
     Dosage: UNK
     Route: 048
     Dates: start: 201205

REACTIONS (15)
  - Cerebral haemorrhage [Recovered/Resolved]
  - Intracranial venous sinus thrombosis [None]
  - Convulsion [None]
  - Injury [Recovered/Resolved]
  - Nervous system disorder [Recovered/Resolved]
  - Headache [Recovered/Resolved]
  - Deformity [None]
  - Iron deficiency anaemia [None]
  - Pain [Recovered/Resolved]
  - Anxiety [None]
  - General physical health deterioration [None]
  - Mental impairment [None]
  - Pain [None]
  - Petit mal epilepsy [None]
  - Amnesia [None]
